FAERS Safety Report 5442663-8 (Version None)
Quarter: 2007Q3

REPORT INFORMATION
  Report Type: 
  Country: None (occurrence: None)
  Receive Date: 20070904
  Receipt Date: 20070828
  Transmission Date: 20080115
  Serious: Yes (Other)
  Sender: FDA-Public Use
  Company Number: US-SHR-US-SHR-03-008699

PATIENT
  Age: 41 Year
  Sex: Female
  Weight: 79 kg

DRUGS (5)
  1. FLUDARA [Suspect]
     Dosage: 30 MG/D, X 5D EVERY 28 DAYS
     Route: 042
     Dates: start: 20030101, end: 20030603
  2. FLUDARA [Suspect]
     Dosage: ^SEVERAL TIMES^
     Route: 042
     Dates: start: 19950101
  3. FLUDARA [Suspect]
     Dosage: 30 MG/D, X 5D EVERY 28 DAYS
     Route: 042
     Dates: start: 20040126
  4. COUMADIN [Concomitant]
     Dosage: 2 MG, BED T.
     Route: 048
     Dates: start: 20010601
  5. TRANXENE [Concomitant]
     Indication: ANXIETY
     Dosage: 3.75 MG, 3X/DAY
     Route: 048
     Dates: start: 20000701

REACTIONS (3)
  - DRUG EXPOSURE DURING PREGNANCY [None]
  - PREMATURE BABY [None]
  - PREMATURE RUPTURE OF MEMBRANES [None]
